FAERS Safety Report 9012823 (Version 1)
Quarter: 2013Q1

REPORT INFORMATION
  Report Type: Spontaneous
  Country: FR (occurrence: FR)
  Receive Date: 20130114
  Receipt Date: 20130114
  Transmission Date: 20140127
  Serious: Yes (Hospitalization)
  Sender: FDA-Public Use
  Company Number: FR-PFIZER INC-2013011965

PATIENT
  Age: 22 Year
  Sex: Female

DRUGS (2)
  1. RHINADVIL [Suspect]
     Dosage: 2 DF
     Route: 048
     Dates: start: 20120430, end: 20120430
  2. MINESSE [Concomitant]
     Dosage: UNK

REACTIONS (4)
  - Angioedema [Recovered/Resolved]
  - Localised oedema [Recovered/Resolved]
  - Face oedema [Recovered/Resolved]
  - Tongue oedema [Recovered/Resolved]
